FAERS Safety Report 23393514 (Version 4)
Quarter: 2024Q1

REPORT INFORMATION
  Report Type: Spontaneous
  Country: US (occurrence: US)
  Receive Date: 20240111
  Receipt Date: 20240326
  Transmission Date: 20240410
  Serious: Yes (Other)
  Sender: FDA-Public Use
  Company Number: US-PFIZER INC-PV202400003808

PATIENT
  Age: 83 Year
  Sex: Male

DRUGS (2)
  1. CIBINQO [Suspect]
     Active Substance: ABROCITINIB
     Dosage: 100 MG
     Route: 048
  2. COLCHICINE [Concomitant]
     Active Substance: COLCHICINE
     Dosage: UNK, 2X/DAY

REACTIONS (1)
  - Nephrolithiasis [Recovered/Resolved]
